FAERS Safety Report 10386412 (Version 2)
Quarter: 2014Q3

REPORT INFORMATION
  Report Type: Spontaneous
  Country: FR (occurrence: FR)
  Receive Date: 20140815
  Receipt Date: 20140818
  Transmission Date: 20150326
  Serious: Yes (Hospitalization)
  Sender: FDA-Public Use
  Company Number: FR-ASTRAZENECA-2014SE59151

PATIENT
  Age: 26387 Day
  Sex: Male

DRUGS (9)
  1. CUBICIN [Suspect]
     Active Substance: DAPTOMYCIN
     Indication: SEPTIC ARTHRITIS STAPHYLOCOCCAL
     Route: 042
     Dates: start: 20131230, end: 20140115
  2. TOPALGIC [Concomitant]
     Active Substance: TRAMADOL
  3. RIFAMPICINE [Concomitant]
     Active Substance: RIFAMPIN
     Indication: ARTHRITIS
     Route: 042
     Dates: start: 20131230
  4. CUBICIN [Suspect]
     Active Substance: DAPTOMYCIN
     Indication: OFF LABEL USE
     Route: 042
     Dates: start: 20131230, end: 20140115
  5. INEXIUM [Concomitant]
     Active Substance: ESOMEPRAZOLE
  6. HYTACAND [Suspect]
     Active Substance: CANDESARTAN CILEXETIL\HYDROCHLOROTHIAZIDE
     Route: 048
     Dates: start: 20140107, end: 20140113
  7. CUBICIN [Suspect]
     Active Substance: DAPTOMYCIN
     Indication: ARTHRITIS
     Route: 042
     Dates: start: 20131230, end: 20140115
  8. CUBICIN [Suspect]
     Active Substance: DAPTOMYCIN
     Indication: STAPHYLOCOCCAL INFECTION
     Route: 042
     Dates: start: 20131230, end: 20140115
  9. CLINDAMYCIN [Concomitant]
     Active Substance: CLINDAMYCIN\CLINDAMYCIN PHOSPHATE
     Indication: ARTHRITIS
     Route: 042

REACTIONS (2)
  - Renal failure acute [Recovered/Resolved]
  - Eosinophilia [Unknown]

NARRATIVE: CASE EVENT DATE: 20140113
